FAERS Safety Report 25096215 (Version 2)
Quarter: 2025Q1

REPORT INFORMATION
  Report Type: Spontaneous
  Country: DE (occurrence: DE)
  Receive Date: 20250319
  Receipt Date: 20250321
  Transmission Date: 20250408
  Serious: Yes (Hospitalization)
  Sender: Vantive US Healthcare
  Company Number: DE-VANTIVE-2025VAN001324

PATIENT
  Sex: Female

DRUGS (2)
  1. EXTRANEAL [Suspect]
     Active Substance: CALCIUM CHLORIDE\ICODEXTRIN\MAGNESIUM CHLORIDE\SODIUM CHLORIDE\SODIUM LACTATE
     Route: 033
  2. CEFEPIME HYDROCHLORIDE [Suspect]
     Active Substance: CEFEPIME HYDROCHLORIDE
     Indication: Product container issue
     Route: 065

REACTIONS (2)
  - Drug hypersensitivity [Unknown]
  - Product container issue [Unknown]
